FAERS Safety Report 9474882 (Version 1)
Quarter: 2013Q3

REPORT INFORMATION
  Report Type: Spontaneous
  Country: US (occurrence: US)
  Receive Date: 20130823
  Receipt Date: 20130823
  Transmission Date: 20140515
  Serious: No
  Sender: FDA-Public Use
  Company Number: US-009507513-1308USA009337

PATIENT
  Age: 81 Year
  Sex: Female

DRUGS (1)
  1. ASMANEX TWISTHALER [Suspect]
     Indication: EMPHYSEMA
     Dosage: ONCE DAILY
     Route: 055
     Dates: start: 2011

REACTIONS (4)
  - Feeling jittery [Recovering/Resolving]
  - Nervousness [Recovering/Resolving]
  - Lung disorder [Recovering/Resolving]
  - Drug dose omission [Unknown]
